FAERS Safety Report 18126645 (Version 1)
Quarter: 2020Q3

REPORT INFORMATION
  Report Type: Spontaneous
  Country: US (occurrence: US)
  Receive Date: 20200809
  Receipt Date: 20200809
  Transmission Date: 20201103
  Serious: Yes (Hospitalization, Other)
  Sender: FDA-Public Use
  Company Number: PHHY2015US165494

PATIENT
  Age: 58 Year
  Sex: Female

DRUGS (2)
  1. INTERLEUKIN?2 [Suspect]
     Active Substance: ALDESLEUKIN
     Indication: CLEAR CELL RENAL CELL CARCINOMA
     Route: 065
  2. EVEROLIMUS. [Suspect]
     Active Substance: EVEROLIMUS
     Indication: CLEAR CELL RENAL CELL CARCINOMA
     Dosage: 10 MG, QD
     Route: 048
     Dates: start: 201502

REACTIONS (9)
  - Recall phenomenon [Recovering/Resolving]
  - Respiratory failure [Recovering/Resolving]
  - Nausea [Unknown]
  - Hypoxia [Recovering/Resolving]
  - Cough [Unknown]
  - Pyrexia [Unknown]
  - Metastases to lung [Unknown]
  - Vomiting [Unknown]
  - Dyspnoea [Recovering/Resolving]

NARRATIVE: CASE EVENT DATE: 201503
